FAERS Safety Report 8809586 (Version 1)
Quarter: 2012Q4

REPORT INFORMATION
  Report Type: Report from Study
  Country: JP (occurrence: JP)
  Receive Date: 20120926
  Receipt Date: 20120926
  Transmission Date: 20130627
  Serious: Yes (Other)
  Sender: FDA-Public Use
  Company Number: JP-VERTEX PHARMACEUTICAL INC.-AE-2012-003954

PATIENT
  Age: 56 Year
  Sex: Female

DRUGS (7)
  1. VX-950 [Suspect]
     Indication: HEPATITIS C
     Dosage: 1500 mg, qd
     Route: 048
     Dates: start: 20120208, end: 20120313
  2. PEGINTRON                          /01543001/ [Suspect]
     Indication: HEPATITIS C
     Dosage: 1.5 UNK, UNK
     Route: 058
     Dates: start: 20120208, end: 20120208
  3. PEGINTRON                          /01543001/ [Suspect]
     Dosage: 0.75 UNK, UNK
     Route: 058
     Dates: start: 20120215, end: 20120228
  4. PEGINTRON                          /01543001/ [Suspect]
     Dosage: 1.5 UNK, UNK
     Route: 058
     Dates: start: 20120306, end: 20120306
  5. PEGINTRON                          /01543001/ [Suspect]
     Dosage: 0.75 UNK, UNK
     Route: 058
     Dates: start: 20120313, end: 20120313
  6. REBETOL [Suspect]
     Indication: HEPATITIS C
     Dosage: 400 mg, qd
     Route: 048
     Dates: start: 20120208, end: 20120228
  7. REBETOL [Suspect]
     Dosage: 200 mg, qd
     Route: 048
     Dates: start: 20120228, end: 20120313

REACTIONS (2)
  - Neutrophil count decreased [Recovered/Resolved]
  - Haemoglobin decreased [Recovered/Resolved]
